FAERS Safety Report 5065553-1 (Version None)
Quarter: 2006Q3

REPORT INFORMATION
  Report Type: 
  Country: None (occurrence: None)
  Receive Date: 20060731
  Receipt Date: 20060724
  Transmission Date: 20061208
  Serious: Yes (Hospitalization, Other)
  Sender: FDA-Public Use
  Company Number: NL-GLAXOSMITHKLINE-B0432576A

PATIENT
  Age: 76 Year
  Sex: Male
  Weight: 102 kg

DRUGS (10)
  1. AMOXICILLIN + CLAVULANATE POTASSIUM [Suspect]
     Indication: DRUG USE FOR UNKNOWN INDICATION
  2. LOSEC [Concomitant]
     Dosage: 20MG PER DAY
  3. BRUFEN [Concomitant]
     Dosage: 400MG SEE DOSAGE TEXT
  4. METFORMIN [Concomitant]
     Dosage: 850MG THREE TIMES PER DAY
  5. LIPITOR [Concomitant]
     Dosage: 10MG PER DAY
  6. ASCAL [Concomitant]
     Dosage: 38MG PER DAY
  7. TEMAZEPAM [Concomitant]
     Dosage: 10MG AS REQUIRED
  8. OXAZEPAM [Concomitant]
     Dosage: 10MG AS REQUIRED
  9. SYMBICORT [Concomitant]
     Route: 055
  10. SEREVENT [Concomitant]
     Route: 055

REACTIONS (11)
  - CHROMATURIA [None]
  - DECREASED APPETITE [None]
  - DYSGEUSIA [None]
  - FAECES DISCOLOURED [None]
  - HEPATIC FUNCTION ABNORMAL [None]
  - HEPATITIS TOXIC [None]
  - JAUNDICE [None]
  - OCULAR ICTERUS [None]
  - PRURITUS [None]
  - WEIGHT DECREASED [None]
  - YELLOW SKIN [None]
